FAERS Safety Report 17224927 (Version 1)
Quarter: 2020Q1

REPORT INFORMATION
  Report Type: Spontaneous
  Country: CH (occurrence: CH)
  Receive Date: 20200102
  Receipt Date: 20200102
  Transmission Date: 20200409
  Serious: Yes (Life-Threatening, Hospitalization)
  Sender: FDA-Public Use
  Company Number: CH-PFIZER INC-2019561731

PATIENT
  Age: 72 Year
  Sex: Male
  Weight: 90 kg

DRUGS (11)
  1. FRAGMIN [Suspect]
     Active Substance: DALTEPARIN SODIUM
     Dosage: 15000 IU, UNK
     Dates: start: 20191213
  2. GALVUMET [Concomitant]
     Active Substance: METFORMIN HYDROCHLORIDE\VILDAGLIPTIN
  3. PROSTAPLANT [SERENOA REPENS EXTRACT;URTICA DIOICA EXTRACT] [Concomitant]
  4. TRANSIPEG [MACROGOL 3350;POTASSIUM CHLORIDE;SODIUM BICARBONATE;SODIUM [Concomitant]
  5. VITARUBIN [HYDROXOCOBALAMIN ACETATE] [Concomitant]
  6. PANTOZOL [ERYTHROMYCIN ETHYLSUCCINATE;SULFAFURAZOLE] [Concomitant]
  7. SYMBICORT [Concomitant]
     Active Substance: BUDESONIDE\FORMOTEROL FUMARATE DIHYDRATE
  8. BELOC ZOK [Concomitant]
     Active Substance: METOPROLOL SUCCINATE
  9. COVERSUM N COMBI [Concomitant]
     Active Substance: INDAPAMIDE\PERINDOPRIL ARGININE
  10. CRESTOR [Concomitant]
     Active Substance: ROSUVASTATIN CALCIUM
  11. PARAGOL [Concomitant]
     Active Substance: MINERAL OIL\PHENOLPHTHALEIN

REACTIONS (2)
  - Shock haemorrhagic [Recovering/Resolving]
  - Incorrect dose administered [Recovered/Resolved]

NARRATIVE: CASE EVENT DATE: 20191213
